FAERS Safety Report 23081911 (Version 1)
Quarter: 2023Q4

REPORT INFORMATION
  Report Type: Spontaneous
  Country: JP (occurrence: JP)
  Receive Date: 20231019
  Receipt Date: 20231019
  Transmission Date: 20240109
  Serious: Yes (Other)
  Sender: FDA-Public Use
  Company Number: JP-002147023-NVSJ2023JP014930

PATIENT
  Sex: Female

DRUGS (1)
  1. FEMARA [Suspect]
     Active Substance: LETROZOLE
     Indication: Ovulation induction
     Dosage: 5 DAYS
     Route: 048
     Dates: start: 202309

REACTIONS (2)
  - Abdominal pain [Recovering/Resolving]
  - Abdominal discomfort [Recovering/Resolving]

NARRATIVE: CASE EVENT DATE: 20230901
